FAERS Safety Report 6994381-2 (Version None)
Quarter: 2010Q3

REPORT INFORMATION
  Report Type: 
  Country: None (occurrence: None)
  Receive Date: 20100917
  Receipt Date: 20100910
  Transmission Date: 20110219
  Serious: Yes (Other)
  Sender: FDA-Public Use
  Company Number: US-GENENTECH-306566

PATIENT
  Sex: Female

DRUGS (2)
  1. XOLAIR [Suspect]
     Indication: ASTHMA
     Dosage: UNK
  2. STEROID (NAME UNKNOWN) [Suspect]
     Indication: ASTHMA

REACTIONS (4)
  - ASTHMA [None]
  - MUSCLE SPASMS [None]
  - PAIN IN EXTREMITY [None]
  - SWELLING FACE [None]
